FAERS Safety Report 9629369 (Version 1)
Quarter: 2013Q4

REPORT INFORMATION
  Report Type: Spontaneous
  Country: US (occurrence: US)
  Receive Date: 20131017
  Receipt Date: 20131017
  Transmission Date: 20140711
  Serious: No
  Sender: FDA-Public Use
  Company Number: US-ASTRAZENECA-2013SE52849

PATIENT
  Age: 55 Year
  Sex: Female
  Weight: 62.6 kg

DRUGS (1)
  1. CRESTOR [Suspect]
     Indication: BLOOD CHOLESTEROL INCREASED
     Route: 048
     Dates: start: 2009, end: 201306

REACTIONS (3)
  - Blood pressure increased [Not Recovered/Not Resolved]
  - Blood disorder [Not Recovered/Not Resolved]
  - Drug dose omission [Unknown]
